FAERS Safety Report 9456819 (Version 1)
Quarter: 2013Q3

REPORT INFORMATION
  Report Type: Spontaneous
  Country: US (occurrence: US)
  Receive Date: 20130813
  Receipt Date: 20130813
  Transmission Date: 20140515
  Serious: Yes (Death, Hospitalization, Other)
  Sender: FDA-Public Use
  Company Number: US-AMGEN-USASP2013054922

PATIENT
  Age: 75 Year
  Sex: Male
  Weight: 69.03 kg

DRUGS (8)
  1. PROCRIT [Suspect]
     Indication: ANAEMIA
     Dosage: 40000 UNIT, QWK
     Route: 058
     Dates: start: 20130703
  2. VIDAZA [Concomitant]
     Indication: MYELODYSPLASTIC SYNDROME
     Dosage: 73 MG, UNK
     Dates: end: 20130627
  3. RED BLOOD CELLS [Concomitant]
     Dosage: UNK
  4. AMIODARONE [Concomitant]
     Indication: SUPRAVENTRICULAR TACHYCARDIA
     Dosage: 200 MG, QD
  5. FUROSEMIDE [Concomitant]
     Dosage: 40 MG, QD
  6. ZOFRON                             /00955301/ [Concomitant]
     Indication: NAUSEA
     Dosage: UNK UNK, AS NECESSARY
  7. PRAVASTATIN [Concomitant]
     Dosage: 40 MG, UNK
  8. JANUMET [Concomitant]
     Dosage: 50/500 1 TABLET QD

REACTIONS (3)
  - Pneumonia [Fatal]
  - Respiratory distress [Fatal]
  - Skin discolouration [Unknown]
